FAERS Safety Report 9081941 (Version 1)
Quarter: 2013Q1

REPORT INFORMATION
  Report Type: Report from Study
  Country: US (occurrence: US)
  Receive Date: 20130130
  Receipt Date: 20130130
  Transmission Date: 20140127
  Serious: No
  Sender: FDA-Public Use
  Company Number: US-ABBOTT-12P-163-0953391-00

PATIENT
  Age: 31 Year
  Sex: Female

DRUGS (7)
  1. HUMIRA 40 MG/0.8 ML PEN [Suspect]
     Indication: CROHN^S DISEASE
     Dates: start: 20120612
  2. HUMIRA 40 MG/0.8 ML PEN [Suspect]
     Dates: start: 20120626
  3. ENTOCORT [Suspect]
     Indication: CROHN^S DISEASE
  4. ENTOCORT [Suspect]
     Dates: start: 20120702
  5. ENTOCORT [Concomitant]
     Indication: CROHN^S DISEASE
  6. ENTOCORT [Concomitant]
     Dates: start: 20120702
  7. 6-MP [Concomitant]
     Indication: CROHN^S DISEASE
     Dosage: 50 MG DAILY

REACTIONS (1)
  - Panic attack [Recovered/Resolved]
